FAERS Safety Report 14806682 (Version 1)
Quarter: 2018Q2

REPORT INFORMATION
  Report Type: Spontaneous
  Country: BR (occurrence: BR)
  Receive Date: 20180425
  Receipt Date: 20180425
  Transmission Date: 20180711
  Serious: Yes (Death)
  Sender: FDA-Public Use
  Company Number: BR-PFIZER INC-2018119692

PATIENT
  Age: 62 Year
  Sex: Male

DRUGS (1)
  1. SUTENT [Suspect]
     Active Substance: SUNITINIB MALATE
     Dosage: UNK
     Dates: start: 20180313

REACTIONS (12)
  - Peripheral swelling [Unknown]
  - Memory impairment [Unknown]
  - Balance disorder [Unknown]
  - Death [Fatal]
  - Immune system disorder [Unknown]
  - Influenza [Unknown]
  - Product storage error [Unknown]
  - Eye swelling [Unknown]
  - Dizziness [Unknown]
  - Swelling face [Unknown]
  - Fall [Unknown]
  - Feeling abnormal [Unknown]

NARRATIVE: CASE EVENT DATE: 2018
